FAERS Safety Report 8953942 (Version 2)
Quarter: 2013Q1

REPORT INFORMATION
  Report Type: Spontaneous
  Country: IT (occurrence: IT)
  Receive Date: 20121206
  Receipt Date: 20130312
  Transmission Date: 20140127
  Serious: Yes (Hospitalization)
  Sender: FDA-Public Use
  Company Number: IT-AMGEN-ITASP2012077982

PATIENT
  Age: 50 Year
  Sex: Male

DRUGS (3)
  1. ENBREL [Suspect]
     Indication: PSORIATIC ARTHROPATHY
     Dosage: 50 MG, CYCLIC
     Route: 058
     Dates: start: 20100901, end: 20121102
  2. METHOTREXATE SODIUM [Concomitant]
     Dosage: 10 MG, UNK
     Route: 030
  3. MEDROL                             /00049601/ [Concomitant]
     Dosage: 16MG, 1 DOSAGE UNIT

REACTIONS (1)
  - Myocardial infarction [Recovering/Resolving]
